FAERS Safety Report 16345671 (Version 2)
Quarter: 2024Q3

REPORT INFORMATION
  Report Type: Spontaneous
  Country: US (occurrence: US)
  Receive Date: 20190523
  Receipt Date: 20240705
  Transmission Date: 20241016
  Serious: No
  Sender: JOHNSON AND JOHNSON
  Company Number: US-JNJFOC-20190514686

PATIENT
  Sex: Male

DRUGS (2)
  1. RISPERDAL [Suspect]
     Active Substance: RISPERIDONE
     Indication: Delusion
     Route: 048
     Dates: start: 1994
  2. RISPERDAL [Suspect]
     Active Substance: RISPERIDONE
     Indication: Disturbance in attention
     Dosage: VARYING DOSES OF 0.5, 1, 1.5, 3 AND 3.5 MG
     Route: 048
     Dates: start: 19980831, end: 2010

REACTIONS (3)
  - Gynaecomastia [Unknown]
  - Weight increased [Unknown]
  - Emotional disorder [Unknown]
